FAERS Safety Report 4557453-8 (Version None)
Quarter: 2005Q1

REPORT INFORMATION
  Report Type: 
  Country: None (occurrence: None)
  Receive Date: 20050120
  Receipt Date: 20040812
  Transmission Date: 20050727
  Serious: Yes (Hospitalization, Other)
  Sender: FDA-Public Use
  Company Number: PHHO2004JP11322

PATIENT
  Age: 57 Year
  Sex: Male
  Weight: 54 kg

DRUGS (9)
  1. CERCINE [Concomitant]
     Dates: start: 20040820, end: 20040826
  2. RABEPRAZOLE SODIUM [Concomitant]
     Dates: start: 20040729, end: 20040826
  3. BUP-4 [Concomitant]
     Dates: start: 20040817, end: 20040818
  4. MALFA [Concomitant]
     Dates: start: 20040730, end: 20040924
  5. POVIDONE IODINE [Concomitant]
     Dates: start: 20040727, end: 20041019
  6. EPOGIN [Concomitant]
  7. FTY720 VS MYCOPHENOLATE MOFETIL [Suspect]
     Indication: RENAL TRANSPLANT
     Dosage: CODE NOT BROKEN
     Route: 048
     Dates: start: 20040726, end: 20040826
  8. NEORAL [Suspect]
     Indication: RENAL TRANSPLANT
     Dosage: 140 MG, BID
     Dates: start: 20040728, end: 20040826
  9. MEDROL [Suspect]
     Indication: RENAL TRANSPLANT
     Dosage: 12 MG, QD
     Dates: start: 20040726

REACTIONS (12)
  - ANURIA [None]
  - ARTERIAL THERAPEUTIC PROCEDURE [None]
  - DISSEMINATED INTRAVASCULAR COAGULATION [None]
  - GRAFT DYSFUNCTION [None]
  - HAEMODIALYSIS [None]
  - INCISIONAL DRAINAGE [None]
  - ISCHAEMIA [None]
  - NEPHRECTOMY [None]
  - PERINEPHRIC COLLECTION [None]
  - SEPSIS [None]
  - URINARY ANASTOMOTIC LEAK [None]
  - URINARY TRACT OPERATION [None]
